FAERS Safety Report 23592747 (Version 2)
Quarter: 2024Q1

REPORT INFORMATION
  Report Type: Spontaneous
  Country: US (occurrence: US)
  Receive Date: 20240304
  Receipt Date: 20240306
  Transmission Date: 20240410
  Serious: No
  Sender: FDA-Public Use
  Company Number: US-PFIZER INC-PV202400029335

PATIENT
  Age: 70 Year
  Sex: Female
  Weight: 90.4 kg

DRUGS (6)
  1. IBRANCE [Suspect]
     Active Substance: PALBOCICLIB
     Dosage: UNK
     Route: 048
     Dates: start: 20200723
  2. IBRANCE [Suspect]
     Active Substance: PALBOCICLIB
     Dosage: 100 MG DAILY, DAYS 1-21 THEN OFF FOR 7 DAYS
  3. FULVESTRANT [Suspect]
     Active Substance: FULVESTRANT
     Dosage: UNK
  4. NEURONTIN [Concomitant]
     Active Substance: GABAPENTIN
     Indication: Back pain
     Dosage: 600 MG, AS NEEDED (TWO 300 MG CAPSULES AT BEDTIME)
     Route: 048
     Dates: start: 20230116
  5. PROTONIX [Concomitant]
     Active Substance: PANTOPRAZOLE SODIUM
     Indication: Gastrooesophageal reflux disease
     Dosage: 20 MG TABLET, ONCE A DAY
     Route: 048
     Dates: start: 20231026
  6. ZOLOFT [Concomitant]
     Active Substance: SERTRALINE HYDROCHLORIDE
     Indication: Major depression
     Dosage: ONE 100 MG TABLET, TWICE A DAY
     Route: 048
     Dates: start: 20240123

REACTIONS (1)
  - Platelet count decreased [Unknown]
